FAERS Safety Report 16320774 (Version 1)
Quarter: 2019Q2

REPORT INFORMATION
  Report Type: Spontaneous
  Country: RO (occurrence: RO)
  Receive Date: 20190516
  Receipt Date: 20190516
  Transmission Date: 20190711
  Serious: Yes (Other)
  Sender: FDA-Public Use
  Company Number: RO-MYLANLABS-2019M1045959

PATIENT
  Sex: Male

DRUGS (6)
  1. SOTALOL. [Suspect]
     Active Substance: SOTALOL
     Indication: HYPERTENSION
     Dosage: 80 MG, 1/2 TABLET, 3 TIMES DAILY
     Route: 065
  2. PRESTARIUM                         /00790701/ [Suspect]
     Active Substance: PERINDOPRIL
     Indication: HYPERTENSION
     Dosage: 5 MG, 1-0-1
     Route: 065
  3. DIAPREL [Suspect]
     Active Substance: GLICLAZIDE
     Indication: HYPERTENSION
     Dosage: UNK
     Route: 065
     Dates: start: 20000101
  4. TERTENSIF [Suspect]
     Active Substance: INDAPAMIDE
     Indication: HYPERTENSION
     Dosage: 1-0-0
     Route: 065
  5. BETASERC [Suspect]
     Active Substance: BETAHISTINE
     Indication: HYPERTENSION
     Dosage: 24 MG, 1-0-0
     Route: 065
  6. ASPENTER [Suspect]
     Active Substance: ASPIRIN
     Indication: PALPITATIONS
     Dosage: 0-1-0 AFTER MEALS
     Route: 065

REACTIONS (1)
  - Concomitant disease aggravated [Unknown]
